FAERS Safety Report 5025720-X (Version None)
Quarter: 2006Q2

REPORT INFORMATION
  Report Type: 
  Country: None (occurrence: None)
  Receive Date: 20060609
  Receipt Date: 20060609
  Transmission Date: 20061013
  Serious: No
  Sender: FDA-Public Use
  Company Number: None

PATIENT
  Age: 57 Year
  Sex: Male
  Weight: 90.7194 kg

DRUGS (1)
  1. TAXOL [Suspect]
     Indication: LUNG NEOPLASM MALIGNANT
     Dosage: 150MG IV OVER 1 HR
     Route: 042
     Dates: start: 20060601

REACTIONS (1)
  - DYSPNOEA [None]
